FAERS Safety Report 21178499 (Version 3)
Quarter: 2023Q1

REPORT INFORMATION
  Report Type: Report from Study
  Country: US (occurrence: US)
  Receive Date: 20220805
  Receipt Date: 20230103
  Transmission Date: 20230418
  Serious: No
  Sender: FDA-Public Use
  Company Number: US-BIOVITRUM-2022US05073

PATIENT
  Sex: Female

DRUGS (14)
  1. KINERET [Suspect]
     Active Substance: ANAKINRA
     Indication: Rheumatoid arthritis
     Dates: start: 20220409
  2. KINERET [Suspect]
     Active Substance: ANAKINRA
     Dates: start: 20220407
  3. ALBUTEROL [Concomitant]
     Active Substance: ALBUTEROL
     Dosage: ALBUTEROL INHALER
  4. FISH OIL [Concomitant]
     Active Substance: FISH OIL
  5. HERBALS\TURMERIC [Concomitant]
     Active Substance: HERBALS\TURMERIC
  6. SYNTHROID [Concomitant]
     Active Substance: LEVOTHYROXINE SODIUM
  7. MOTRIN [Concomitant]
     Active Substance: IBUPROFEN
  8. PAXLOVID [Concomitant]
     Active Substance: NIRMATRELVIR\RITONAVIR
  9. AZITHROMYCIN [Concomitant]
     Active Substance: AZITHROMYCIN
  10. TYLENOL (OTC) [Concomitant]
  11. LEVOTHYROXINE [Concomitant]
     Active Substance: LEVOTHYROXINE
  12. TRAMADOL HCL [Concomitant]
     Active Substance: TRAMADOL HYDROCHLORIDE
  13. DEXAMETHASONE [Concomitant]
     Active Substance: DEXAMETHASONE
  14. OMEPRAZOLE [Concomitant]
     Active Substance: OMEPRAZOLE

REACTIONS (6)
  - Loss of personal independence in daily activities [Unknown]
  - COVID-19 [Unknown]
  - Injection site pain [Unknown]
  - Injection site urticaria [Unknown]
  - Product dose omission issue [Unknown]
  - Product dose omission in error [Unknown]
